FAERS Safety Report 11983797 (Version 1)
Quarter: 2016Q1

REPORT INFORMATION
  Report Type: Report from Study
  Country: DE (occurrence: DE)
  Receive Date: 20160201
  Receipt Date: 20160201
  Transmission Date: 20160526
  Serious: Yes (Hospitalization)
  Sender: FDA-Public Use
  Company Number: DE-ABBVIE-15K-062-1524936-00

PATIENT
  Age: 21 Year
  Sex: Male
  Weight: 63 kg

DRUGS (2)
  1. HUMIRA [Suspect]
     Active Substance: ADALIMUMAB
     Indication: CROHN^S DISEASE
     Route: 058
     Dates: start: 20141218
  2. HUMIRA [Suspect]
     Active Substance: ADALIMUMAB
     Dosage: DOSE INCREASED
     Route: 058

REACTIONS (9)
  - Gastrointestinal disorder [Recovering/Resolving]
  - Bursitis [Recovering/Resolving]
  - Crohn^s disease [Unknown]
  - Fistula of small intestine [Unknown]
  - Muscle tightness [Recovering/Resolving]
  - Hospitalisation [Recovered/Resolved]
  - Arthralgia [Recovering/Resolving]
  - Abdominal pain [Recovering/Resolving]
  - Venous thrombosis limb [Unknown]

NARRATIVE: CASE EVENT DATE: 2015
